FAERS Safety Report 9041362 (Version 1)
Quarter: 2013Q1

REPORT INFORMATION
  Report Type: Spontaneous
  Country: US (occurrence: None)
  Receive Date: 20130125
  Receipt Date: 20130125
  Transmission Date: 20140127
  Serious: Yes (Other)
  Sender: FDA-Public Use
  Company Number: None

PATIENT
  Age: 75 Year
  Sex: Female
  Weight: 52.16 kg

DRUGS (1)
  1. ZOLPIDEM TARTRATE [Suspect]
     Indication: INSOMNIA
     Dosage: ONE TABLET  AT BEDTIME  ORAL
     Route: 048
     Dates: start: 20130108

REACTIONS (4)
  - Muscle twitching [None]
  - Erythema [None]
  - Anaphylactic reaction [None]
  - Product substitution issue [None]
